FAERS Safety Report 8089016-4 (Version None)
Quarter: 2012Q1

REPORT INFORMATION
  Report Type: 
  Country: None (occurrence: None)
  Receive Date: 20120128
  Receipt Date: 20110727
  Transmission Date: 20120608
  Serious: No
  Sender: FDA-Public Use
  Company Number: US-ABBOTT-11P-163-0699237-00

PATIENT
  Age: 46 Year
  Sex: Female

DRUGS (6)
  1. LEFLUNOMIDE [Concomitant]
     Indication: ARTHRITIS
     Route: 048
  2. TRAMADOL HCL [Concomitant]
     Indication: PAIN
  3. ARAVA [Concomitant]
     Indication: RHEUMATOID ARTHRITIS
  4. HUMIRA [Suspect]
     Indication: RHEUMATOID ARTHRITIS
     Dates: start: 20110111
  5. HYDROCODONE BITARTRATE [Concomitant]
     Indication: PAIN
     Dosage: 5/325MG 3X A DAY
     Route: 048
  6. PREDNISONE TAB [Concomitant]
     Indication: RHEUMATOID ARTHRITIS
     Route: 048

REACTIONS (10)
  - INSOMNIA [None]
  - FEELING ABNORMAL [None]
  - NAUSEA [None]
  - VISION BLURRED [None]
  - HAND DEFORMITY [None]
  - ARTHROPATHY [None]
  - ARTHRITIS [None]
  - RHEUMATOID ARTHRITIS [None]
  - MALAISE [None]
  - GAIT DISTURBANCE [None]
